FAERS Safety Report 6079296-9 (Version None)
Quarter: 2009Q1

REPORT INFORMATION
  Report Type: 
  Country: None (occurrence: None)
  Receive Date: 20090216
  Receipt Date: 20090203
  Transmission Date: 20090719
  Serious: Yes (Hospitalization)
  Sender: FDA-Public Use
  Company Number: DE-ROCHE-612082

PATIENT
  Sex: Female
  Weight: 75 kg

DRUGS (8)
  1. CAPECITABINE [Suspect]
     Indication: BREAST CANCER
     Dosage: 2 X 1000 MG/M2 TAKEN APPROX. 12 HOURS APART DAYS 1-14, Q 22 DAYS  FOR 4 CYCLES
     Route: 048
     Dates: start: 20080813, end: 20081027
  2. EPOETIN BETA [Suspect]
     Indication: DRUG USE FOR UNKNOWN INDICATION
     Dosage: 450IE/KG DAY 1 OF FIRST CHEMOTHERAPY CYCLE. TAKEN EVERY 7 DAYS THEREAFTER.
     Route: 065
  3. EPIRUBICIN [Suspect]
     Indication: BREAST CANCER
     Dosage: DAYS 1 AND 14. 112.5 MG/M2 DAY 1 Q 15 DAYS PER PROTOCOL
     Route: 042
     Dates: start: 20080613, end: 20080725
  4. CYCLOPHOSPHAMIDE [Suspect]
     Indication: BREAST CANCER
     Dosage: DAYS 1 AND 14. 600 MG/M DAY 1 Q 15 DAYS FOR 4 CYCLES PER PROTOCOL.
     Route: 042
     Dates: start: 20080613, end: 20080725
  5. PACLITAXEL [Suspect]
     Indication: BREAST CANCER
     Dosage: DAYS 1, 7, AND 14. 67.5 MG/M2 DAY 1, Q 8  DAYS FOR 10 CYCLES PER PROTOCOL.
     Route: 042
     Dates: start: 20080808, end: 20081024
  6. DEXAMETHASONE [Suspect]
     Indication: SUPPORTIVE CARE
     Dosage: DAYS 1-3
     Route: 065
     Dates: start: 20080613, end: 20081024
  7. CLEMASTIN [Concomitant]
  8. ONDANSETRON [Concomitant]

REACTIONS (1)
  - TYPE 2 DIABETES MELLITUS [None]
